FAERS Safety Report 8600812 (Version 3)
Quarter: 2013Q4

REPORT INFORMATION
  Report Type: Spontaneous
  Country: US (occurrence: US)
  Receive Date: 20120606
  Receipt Date: 20131118
  Transmission Date: 20140711
  Serious: No
  Sender: FDA-Public Use
  Company Number: US-JNJFOC-20120520682

PATIENT
  Sex: Male
  Weight: 65.77 kg

DRUGS (6)
  1. DURAGESIC [Suspect]
     Indication: MUSCULOSKELETAL PAIN
     Route: 062
  2. DURAGESIC [Suspect]
     Indication: MUSCULOSKELETAL PAIN
     Route: 062
     Dates: start: 2010
  3. DURAGESIC [Suspect]
     Indication: BACK PAIN
     Route: 062
  4. DURAGESIC [Suspect]
     Indication: BACK PAIN
     Route: 062
     Dates: start: 2010
  5. UNKNOWN MEDICATION [Suspect]
     Indication: BREAKTHROUGH PAIN
     Route: 065
     Dates: end: 2011
  6. TESTOSTERONE [Concomitant]
     Indication: BLOOD TESTOSTERONE DECREASED

REACTIONS (3)
  - Drug ineffective [Recovered/Resolved]
  - Product adhesion issue [Unknown]
  - Drug dose omission [Unknown]
